FAERS Safety Report 7675356-7 (Version None)
Quarter: 2011Q3

REPORT INFORMATION
  Report Type: 
  Country: None (occurrence: None)
  Receive Date: 20110810
  Receipt Date: 20110802
  Transmission Date: 20111222
  Serious: Yes (Hospitalization)
  Sender: FDA-Public Use
  Company Number: CA-PFIZER INC-2011177584

PATIENT
  Age: 73 Year
  Sex: Male

DRUGS (19)
  1. SIMVASTATIN [Concomitant]
     Indication: HYPERCHOLESTEROLAEMIA
     Dosage: 40 MG, 1X/DAY
     Route: 048
     Dates: start: 20020101
  2. PROPYLTHIOURACIL [Concomitant]
     Indication: HYPERTHYROIDISM
     Dosage: UNK
     Route: 048
     Dates: start: 20110101
  3. ZOPICLONE [Concomitant]
     Indication: SLEEP DISORDER THERAPY
     Dosage: 7.5 MG, AS NEEDED
     Route: 048
     Dates: start: 20101201
  4. INDOMETHACIN [Concomitant]
     Indication: ANALGESIC THERAPY
     Dosage: 50 MG, AS NEEDED
     Route: 048
     Dates: start: 20110101
  5. ESCITALOPRAM [Concomitant]
     Indication: DEPRESSION
     Dosage: 10 MG, 1X/DAY
     Route: 048
     Dates: start: 20110329
  6. SOLATOL [Concomitant]
     Indication: ATRIAL FIBRILLATION
     Dosage: 80 MG, 2X/DAY
     Route: 048
     Dates: start: 20110201, end: 20110401
  7. DILANTIN [Suspect]
     Indication: CEREBROVASCULAR ACCIDENT
     Dosage: 100 MG, 3X/DAY
     Route: 048
     Dates: start: 20101201
  8. BLINDED THERAPY [Suspect]
     Dosage: UNK
     Route: 048
     Dates: start: 20101122, end: 20101208
  9. WARFARIN [Concomitant]
     Indication: ATRIAL FIBRILLATION
     Dosage: 3 MG, 1X/DAY
     Route: 048
     Dates: start: 20101201
  10. COLACE [Concomitant]
     Indication: CONSTIPATION PROPHYLAXIS
     Dosage: 200 MG, 2X/DAY
     Route: 048
     Dates: start: 20101201
  11. TYLENOL-500 [Concomitant]
     Indication: ANALGESIC THERAPY
     Dosage: 325 MG, AS NEEDED
     Route: 048
     Dates: start: 20101201
  12. OMEPRAZOLE [Concomitant]
     Indication: PEPTIC ULCER
     Dosage: 20 MG, 1X/DAY
     Route: 048
     Dates: start: 20110329, end: 20110401
  13. PIOGLITAZONE [Concomitant]
     Indication: DIABETES MELLITUS
     Dosage: 45 MG, 1X/DAY
     Route: 048
     Dates: start: 20101201
  14. BACLOFEN [Concomitant]
     Indication: CEREBROVASCULAR ACCIDENT
     Dosage: 10 MG, AS NEEDED
     Route: 048
     Dates: start: 20101201
  15. ALLOPURINOL [Concomitant]
     Indication: GOUT
     Dosage: 300 MG, 1X/DAY
     Route: 048
     Dates: start: 20110330
  16. REPAGLINIDE [Concomitant]
     Indication: DIABETES MELLITUS
     Dosage: 3 MG, 2X/WEEK
     Route: 048
     Dates: start: 20040101
  17. PERINDOPRIL [Concomitant]
     Indication: HYPERTENSION
     Dosage: 4 MG, 1X/DAY
     Route: 048
     Dates: start: 20101201
  18. ARTHROTEC [Concomitant]
     Indication: ANALGESIC THERAPY
     Dosage: 50 MG, 1X/DAY
     Route: 048
     Dates: start: 20110101
  19. METOPROLOL [Concomitant]
     Indication: HYPERTENSION
     Dosage: 12.5 MG, 2X/DAY
     Route: 048
     Dates: start: 20101201

REACTIONS (1)
  - TOXICITY TO VARIOUS AGENTS [None]
